FAERS Safety Report 20382631 (Version 2)
Quarter: 2022Q1

REPORT INFORMATION
  Report Type: Spontaneous
  Country: US (occurrence: None)
  Receive Date: 20220127
  Receipt Date: 20220223
  Transmission Date: 20220423
  Serious: No
  Sender: FDA-Public Use
  Company Number: US-ROCHE-3005811

PATIENT
  Sex: Female

DRUGS (1)
  1. ENSPRYNG [Suspect]
     Active Substance: SATRALIZUMAB-MWGE
     Indication: Multiple sclerosis
     Dosage: STRENGTH: 120MG/ML
     Route: 058
     Dates: start: 202201

REACTIONS (2)
  - Off label use [Unknown]
  - No adverse event [Unknown]
